FAERS Safety Report 6942180-X (Version None)
Quarter: 2010Q3

REPORT INFORMATION
  Report Type: 
  Country: None (occurrence: None)
  Receive Date: 20100826
  Receipt Date: 20100726
  Transmission Date: 20110219
  Serious: No
  Sender: FDA-Public Use
  Company Number: US-BAYER-201018845BCC

PATIENT
  Age: 70 Year
  Sex: Female
  Weight: 58 kg

DRUGS (5)
  1. ALEVE [Suspect]
     Indication: PRODUCT USED FOR UNKNOWN INDICATION
     Dosage: TOTAL DAILY DOSE: 4 DF  UNIT DOSE: 1 DF
     Route: 048
     Dates: start: 20100726
  2. MOBIC [Concomitant]
     Route: 065
  3. SYNTHROID [Concomitant]
     Route: 065
  4. PRILOSEC [Concomitant]
     Route: 065
  5. LITHIUM CARBONATE [Concomitant]
     Route: 065

REACTIONS (1)
  - NO ADVERSE EVENT [None]
